FAERS Safety Report 7352130-2 (Version None)
Quarter: 2011Q1

REPORT INFORMATION
  Report Type: 
  Country: None (occurrence: None)
  Receive Date: 20110309
  Receipt Date: 20110309
  Transmission Date: 20110831
  Serious: Yes (Hospitalization)
  Sender: FDA-Public Use
  Company Number: None

PATIENT
  Sex: Female
  Weight: 91 kg

DRUGS (16)
  1. K-DUR [Concomitant]
  2. CARBOPLATIN [Suspect]
     Dosage: 600 MG
     Dates: end: 20110216
  3. TAXOL [Suspect]
     Dosage: 402 MG
     Dates: end: 20110216
  4. HUMULIN 70/30 [Concomitant]
  5. HYDROCODONE BITARTRATE [Concomitant]
  6. PRAVACHOL [Concomitant]
  7. COUMADIN [Concomitant]
  8. FOLIC ACID [Concomitant]
  9. MULTI-VITAMIN [Concomitant]
  10. ZESTRIL [Concomitant]
  11. BUMEX [Concomitant]
  12. FERROUS SULFATE TAB [Concomitant]
  13. SYNTHROID [Concomitant]
  14. BMX MOUTHWASH [Concomitant]
  15. COMPAZINE [Concomitant]
  16. TOPROL-XL [Concomitant]

REACTIONS (2)
  - WHITE BLOOD CELL COUNT DECREASED [None]
  - WHITE BLOOD CELL COUNT INCREASED [None]
